FAERS Safety Report 14753267 (Version 6)
Quarter: 2018Q4

REPORT INFORMATION
  Report Type: Spontaneous
  Country: US (occurrence: US)
  Receive Date: 20180412
  Receipt Date: 20181031
  Transmission Date: 20190204
  Serious: Yes (Disabling)
  Sender: FDA-Public Use
  Company Number: US-PFIZER INC-2018150639

PATIENT
  Age: 50 Year
  Sex: Female
  Weight: 113 kg

DRUGS (3)
  1. LYRICA [Suspect]
     Active Substance: PREGABALIN
     Indication: BACK PAIN
     Dosage: 300 MG, DAILY (100 MG IN THE MORNING AND 200 MG AT NIGHT)
     Route: 048
     Dates: start: 2017
  2. LYRICA [Suspect]
     Active Substance: PREGABALIN
     Indication: NEURALGIA
     Dosage: 100 MG, UNK
  3. LYRICA [Suspect]
     Active Substance: PREGABALIN
     Indication: NERVE INJURY
     Dosage: 300 MG, DAILY (100MG IN THE MORNING AND 200MG AT NIGHT)
     Dates: start: 201610

REACTIONS (23)
  - Vomiting [Recovered/Resolved]
  - Asthenia [Recovering/Resolving]
  - Intervertebral disc protrusion [Recovering/Resolving]
  - Pain in extremity [Recovering/Resolving]
  - Withdrawal syndrome [Unknown]
  - Abdominal discomfort [Unknown]
  - Weight increased [Not Recovered/Not Resolved]
  - Speech disorder [Recovering/Resolving]
  - Headache [Recovering/Resolving]
  - Decreased appetite [Not Recovered/Not Resolved]
  - Feeling abnormal [Recovering/Resolving]
  - Hypoaesthesia [Recovering/Resolving]
  - Insomnia [Unknown]
  - Intervertebral disc disorder [Unknown]
  - Radiculopathy [Unknown]
  - Bradyphrenia [Recovering/Resolving]
  - Nausea [Not Recovered/Not Resolved]
  - Muscular weakness [Recovering/Resolving]
  - Memory impairment [Unknown]
  - Malaise [Recovering/Resolving]
  - Diarrhoea [Not Recovered/Not Resolved]
  - Somnolence [Recovering/Resolving]
  - Fatigue [Recovering/Resolving]

NARRATIVE: CASE EVENT DATE: 2018
